FAERS Safety Report 14020095 (Version 1)
Quarter: 2017Q3

REPORT INFORMATION
  Report Type: Spontaneous
  Country: JP (occurrence: JP)
  Receive Date: 20170928
  Receipt Date: 20170928
  Transmission Date: 20171128
  Serious: Yes (Hospitalization)
  Sender: FDA-Public Use
  Company Number: JP-JNJFOC-20170907415

PATIENT
  Age: 83 Year
  Sex: Male
  Weight: 67 kg

DRUGS (4)
  1. BAYASPIRIN [Suspect]
     Active Substance: ASPIRIN
     Indication: PRODUCT USED FOR UNKNOWN INDICATION
     Dosage: DRUG START PERIOD: 1186 DAYS
     Route: 048
     Dates: start: 20130913, end: 20161211
  2. CELECOXIB. [Concomitant]
     Active Substance: CELECOXIB
     Indication: CHONDROCALCINOSIS PYROPHOSPHATE
     Route: 065
     Dates: start: 20161215, end: 20161230
  3. XARELTO [Suspect]
     Active Substance: RIVAROXABAN
     Indication: ATRIAL FIBRILLATION
     Route: 048
     Dates: start: 20160916, end: 20161211
  4. XARELTO [Suspect]
     Active Substance: RIVAROXABAN
     Indication: ATRIAL FIBRILLATION
     Route: 048
     Dates: start: 20170127

REACTIONS (3)
  - Drug interaction [Unknown]
  - Large intestinal haemorrhage [Recovered/Resolved]
  - Chronic kidney disease [Recovered/Resolved]

NARRATIVE: CASE EVENT DATE: 20161211
